FAERS Safety Report 12832153 (Version 1)
Quarter: 2016Q4

REPORT INFORMATION
  Report Type: Spontaneous
  Country: US (occurrence: US)
  Receive Date: 20161010
  Receipt Date: 20161010
  Transmission Date: 20170207
  Serious: No
  Sender: FDA-Public Use
  Company Number: US-BAYER-2016-195247

PATIENT
  Age: 63 Year
  Sex: Male
  Weight: 104.76 kg

DRUGS (20)
  1. VITAMIN B12 [Concomitant]
     Active Substance: CYANOCOBALAMIN
  2. JANUVIA [Concomitant]
     Active Substance: SITAGLIPTIN PHOSPHATE
  3. FISH OIL [Concomitant]
     Active Substance: FISH OIL
  4. FLUTICASONE PROPIONATE. [Concomitant]
     Active Substance: FLUTICASONE PROPIONATE
  5. METFORMIN [Concomitant]
     Active Substance: METFORMIN HYDROCHLORIDE
  6. RIVASTIGMINE. [Concomitant]
     Active Substance: RIVASTIGMINE
  7. OXYBUTYNIN [Concomitant]
     Active Substance: OXYBUTYNIN
  8. GLIPIZIDE. [Concomitant]
     Active Substance: GLIPIZIDE
  9. MIRALAX [Suspect]
     Active Substance: POLYETHYLENE GLYCOL 3350
     Indication: GASTROINTESTINAL DISORDER
     Dosage: 1 DF, QD
     Route: 048
     Dates: start: 20161005
  10. LISINOPRIL. [Concomitant]
     Active Substance: LISINOPRIL
  11. SIMVASTATIN. [Concomitant]
     Active Substance: SIMVASTATIN
  12. WARFARIN [Concomitant]
     Active Substance: WARFARIN
  13. KLOR-CON [Concomitant]
     Active Substance: POTASSIUM CHLORIDE
  14. ROPINIROLE. [Concomitant]
     Active Substance: ROPINIROLE
  15. CARBIDOPA W/LEVODOPA [Concomitant]
     Active Substance: CARBIDOPA\LEVODOPA
  16. CARVEDILOL. [Concomitant]
     Active Substance: CARVEDILOL
  17. FENOFIBRATE. [Concomitant]
     Active Substance: FENOFIBRATE
  18. FUROSEMIDE. [Concomitant]
     Active Substance: FUROSEMIDE
  19. DIGOXIN. [Concomitant]
     Active Substance: DIGOXIN
  20. NIACIN. [Concomitant]
     Active Substance: NIACIN

REACTIONS (2)
  - Off label use [None]
  - Expired product administered [None]

NARRATIVE: CASE EVENT DATE: 20161005
